FAERS Safety Report 8610319-6 (Version None)
Quarter: 2012Q3

REPORT INFORMATION
  Report Type: 
  Country: None (occurrence: None)
  Receive Date: 20120822
  Receipt Date: 20120813
  Transmission Date: 20120928
  Serious: Yes (Hospitalization)
  Sender: FDA-Public Use
  Company Number: PHHY2012IT070921

PATIENT
  Sex: Male

DRUGS (2)
  1. OXCARBAZEPINE [Suspect]
     Dosage: 7 DF, UNK
     Route: 048
     Dates: start: 20120422, end: 20120422
  2. ZYPREXA [Suspect]
     Dosage: 4 DF, UNK
     Route: 048
     Dates: start: 20120422, end: 20120422

REACTIONS (11)
  - MULTIPLE DRUG OVERDOSE INTENTIONAL [None]
  - GAMMA-GLUTAMYLTRANSFERASE INCREASED [None]
  - BLOOD SODIUM DECREASED [None]
  - ASPARTATE AMINOTRANSFERASE INCREASED [None]
  - PRESYNCOPE [None]
  - BLOOD CHLORIDE DECREASED [None]
  - BLOOD CREATINE PHOSPHOKINASE INCREASED [None]
  - SUICIDE ATTEMPT [None]
  - BLOOD CHOLINESTERASE DECREASED [None]
  - ALANINE AMINOTRANSFERASE INCREASED [None]
  - AGGRESSION [None]
